FAERS Safety Report 4371213-2 (Version None)
Quarter: 2004Q2

REPORT INFORMATION
  Report Type: 
  Country: None (occurrence: None)
  Receive Date: 20040604
  Receipt Date: 20040528
  Transmission Date: 20050107
  Serious: Yes (Hospitalization)
  Sender: FDA-Public Use
  Company Number: PA-ROCHE-369559

PATIENT
  Age: 69 Year
  Sex: Male
  Weight: 42.7 kg

DRUGS (2)
  1. CAPECITABINE [Suspect]
     Dosage: ACTUAL DOSE 1500 MG BID. TWO WEEKS TREATMENT/ ONE WEEK REST
     Route: 048
     Dates: start: 20040324
  2. OXALIPLATIN [Suspect]
     Dosage: ACTUAL DOSE 187 MG.
     Route: 042
     Dates: start: 20040324

REACTIONS (4)
  - BLOOD POTASSIUM DECREASED [None]
  - DEHYDRATION [None]
  - DIARRHOEA [None]
  - HYPOVOLAEMIC SHOCK [None]
